FAERS Safety Report 21101465 (Version 2)
Quarter: 2022Q3

REPORT INFORMATION
  Report Type: Spontaneous
  Country: US (occurrence: US)
  Receive Date: 20220719
  Receipt Date: 20220803
  Transmission Date: 20221027
  Serious: No
  Sender: FDA-Public Use
  Company Number: US-MYLANLABS-2022M1051868

PATIENT
  Age: 58 Year
  Sex: Female
  Weight: 71.67 kg

DRUGS (1)
  1. ESTRADIOL TRANSDERMAL SYSTEM [Suspect]
     Active Substance: ESTRADIOL
     Indication: Blood oestrogen decreased
     Dosage: 0.6 MILLIGRAM, QD (ONCE WEEKLY)
     Route: 065
     Dates: start: 20220523

REACTIONS (6)
  - Product adhesion issue [Unknown]
  - Product quality issue [Unknown]
  - Application site reaction [Unknown]
  - Application site discolouration [Unknown]
  - Feeling abnormal [Recovered/Resolved]
  - Hypersensitivity [Recovered/Resolved]

NARRATIVE: CASE EVENT DATE: 20220523
